FAERS Safety Report 7865448-1 (Version None)
Quarter: 2011Q4

REPORT INFORMATION
  Report Type: 
  Country: None (occurrence: None)
  Receive Date: 20111028
  Receipt Date: 20101230
  Transmission Date: 20120403
  Serious: No
  Sender: FDA-Public Use
  Company Number: US-GLAXOSMITHKLINE-A0902047A

PATIENT
  Age: 76 Year
  Sex: Male

DRUGS (6)
  1. AVODART [Concomitant]
  2. NIFEDIAC [Concomitant]
  3. ALBUTEROL [Concomitant]
  4. LISINOPRIL [Concomitant]
  5. ADVAIR DISKUS 100/50 [Suspect]
     Indication: ASTHMA
     Dosage: 1PUFF TWICE PER DAY
     Route: 055
     Dates: start: 20061201
  6. ALENDRONATE SODIUM [Concomitant]

REACTIONS (6)
  - PRODUCT QUALITY ISSUE [None]
  - INHALATION THERAPY [None]
  - PRODUCTIVE COUGH [None]
  - DRUG INEFFECTIVE [None]
  - DYSPNOEA [None]
  - WHEEZING [None]
